FAERS Safety Report 4924545-0 (Version None)
Quarter: 2006Q1

REPORT INFORMATION
  Report Type: 
  Country: None (occurrence: None)
  Receive Date: 20060222
  Receipt Date: 20060207
  Transmission Date: 20060701
  Serious: No
  Sender: FDA-Public Use
  Company Number: J081-002-002136

PATIENT
  Age: 60 Year
  Sex: Female

DRUGS (2)
  1. ARICEPT [Suspect]
     Indication: DEMENTIA ALZHEIMER'S TYPE
     Dosage: 3 MG, 1 IN 1 D, ORAL   ; 5 MG, 1 IN 1 D, ORAL
     Route: 048
     Dates: start: 20051108, end: 20050101
  2. ARICEPT [Suspect]
     Indication: DEMENTIA ALZHEIMER'S TYPE
     Dosage: 3 MG, 1 IN 1 D, ORAL   ; 5 MG, 1 IN 1 D, ORAL
     Route: 048
     Dates: start: 20050101

REACTIONS (1)
  - SUICIDAL IDEATION [None]
